FAERS Safety Report 6161723-X (Version None)
Quarter: 2009Q2

REPORT INFORMATION
  Report Type: 
  Country: None (occurrence: None)
  Receive Date: 20090417
  Receipt Date: 20090417
  Transmission Date: 20091009
  Serious: Yes (Other)
  Sender: FDA-Public Use
  Company Number: None

PATIENT
  Age: 48 Year
  Sex: Male
  Weight: 80.5 kg

DRUGS (2)
  1. CETUXIMAB [Suspect]
     Indication: COLON CANCER
     Dosage: 400MG/M2
  2. IRINOTECAN HCL [Concomitant]
     Indication: COLON CANCER
     Dosage: 180MG/M2

REACTIONS (4)
  - ABDOMINAL PAIN [None]
  - FEELING HOT [None]
  - INFUSION RELATED REACTION [None]
  - RESTLESSNESS [None]
